FAERS Safety Report 9271159 (Version 2)
Quarter: 2013Q2

REPORT INFORMATION
  Report Type: Report from Study
  Country: US (occurrence: US)
  Receive Date: 20130506
  Receipt Date: 20130513
  Transmission Date: 20140414
  Serious: Yes (Other)
  Sender: FDA-Public Use
  Company Number: PHEH2013US009749

PATIENT
  Sex: Male

DRUGS (17)
  1. ZOMETA [Suspect]
     Indication: PLASMA CELL MYELOMA
     Dosage: 4 MG, UNK
     Route: 042
  2. REVLIMID [Suspect]
     Dosage: UNK UKN, UNK
  3. FISH OIL [Concomitant]
     Dosage: UNK UKN, UNK
  4. DEXAMETHASONE [Concomitant]
     Dosage: 1 MG, UNK
  5. HYDROCHLOORTHIAZIDE [Concomitant]
     Dosage: 25 MG, UNK
  6. VITAMIIN C [Concomitant]
     Dosage: 500 MG, UNK
  7. CO Q-10 [Concomitant]
     Dosage: UNK UKN, UNK
  8. DOXYCYCLINE [Concomitant]
     Dosage: 75 MG, UNK
  9. FIBER [Concomitant]
     Dosage: 0.52 MG, UNK
  10. B COMPLEX [Concomitant]
     Dosage: UNK UKN, UNK
  11. POTASSIUM CHLORIDE [Concomitant]
     Dosage: 8 MEQ, UNK
  12. PHENERGAN [Concomitant]
     Dosage: 25 MG, UNK
  13. HYDROCODONE [Concomitant]
     Dosage: UNK UKN, UNK
  14. HOMATROPINE [Concomitant]
     Dosage: UNK UKN, UNK
  15. NAPROXEN [Concomitant]
     Dosage: 375 MG, UNK
  16. NASALCROM [Concomitant]
     Dosage: 5.2 UKN, UNK
  17. TOBRADEX [Concomitant]
     Dosage: UNK UKN, UNK

REACTIONS (2)
  - Bronchitis [Unknown]
  - Cough [Unknown]
